FAERS Safety Report 7553151-7 (Version None)
Quarter: 2011Q2

REPORT INFORMATION
  Report Type: 
  Country: None (occurrence: None)
  Receive Date: 20110616
  Receipt Date: 20110606
  Transmission Date: 20111010
  Serious: Yes (Other)
  Sender: FDA-Public Use
  Company Number: TH-BRISTOL-MYERS SQUIBB COMPANY-15805450

PATIENT
  Age: 64 Year
  Sex: Female

DRUGS (4)
  1. VINCRISTINE [Suspect]
     Indication: LYMPHOMA
  2. RITUXIMAB [Suspect]
     Indication: LYMPHOMA
  3. CYCLOPHOSPHAMIDE [Suspect]
     Indication: LYMPHOMA
  4. PREDNISOLONE [Suspect]
     Indication: LYMPHOMA

REACTIONS (7)
  - TETANY [None]
  - HYPOKALAEMIA [None]
  - HYPONATRAEMIA [None]
  - CYTOMEGALOVIRUS COLITIS [None]
  - HYPOCALCAEMIA [None]
  - HYPOMAGNESAEMIA [None]
  - HYPOPHOSPHATAEMIA [None]
